FAERS Safety Report 6714839-0 (Version None)
Quarter: 2010Q2

REPORT INFORMATION
  Report Type: 
  Country: None (occurrence: None)
  Receive Date: 20100507
  Receipt Date: 20100427
  Transmission Date: 20101027
  Serious: Yes (Other)
  Sender: FDA-Public Use
  Company Number: US-JNJFOC-20100407742

PATIENT
  Sex: Male
  Weight: 77.11 kg

DRUGS (3)
  1. REMICADE [Suspect]
     Indication: COLITIS ULCERATIVE
     Dosage: 5 MG/KG
     Route: 042
  2. HUMIRA [Suspect]
     Indication: COLITIS ULCERATIVE
  3. CIMZIA [Suspect]
     Indication: COLITIS ULCERATIVE

REACTIONS (3)
  - PROSTATE CANCER [None]
  - THERAPEUTIC RESPONSE DECREASED [None]
  - UNEVALUABLE EVENT [None]
